FAERS Safety Report 16411415 (Version 7)
Quarter: 2021Q1

REPORT INFORMATION
  Report Type: Report from Study
  Country: US (occurrence: US)
  Receive Date: 20190610
  Receipt Date: 20210326
  Transmission Date: 20210419
  Serious: Yes (Hospitalization)
  Sender: FDA-Public Use
  Company Number: US-EISAI MEDICAL RESEARCH-EC-2018-047584

PATIENT
  Age: 75 Year
  Sex: Male
  Weight: 104.32 kg

DRUGS (27)
  1. SIMVASTATIN. [Concomitant]
     Active Substance: SIMVASTATIN
  2. IMODIUM [Concomitant]
     Active Substance: LOPERAMIDE HYDROCHLORIDE
  3. LENVIMA [Suspect]
     Active Substance: LENVATINIB
     Route: 048
     Dates: start: 2019, end: 20191223
  4. LENVIMA [Suspect]
     Active Substance: LENVATINIB
     Dates: start: 2020, end: 2020
  5. COLCHICINE. [Concomitant]
     Active Substance: COLCHICINE
  6. VANCOMYCIN [Concomitant]
     Active Substance: VANCOMYCIN
  7. LENVIMA [Suspect]
     Active Substance: LENVATINIB
     Indication: THYROID CANCER
     Route: 048
     Dates: start: 20181023
  8. ASPIRIN. [Concomitant]
     Active Substance: ASPIRIN
  9. SPIRONOLACTONE. [Concomitant]
     Active Substance: SPIRONOLACTONE
  10. PLAVIX [Concomitant]
     Active Substance: CLOPIDOGREL BISULFATE
  11. VITAMIN C [Concomitant]
     Active Substance: ASCORBIC ACID
  12. BIOTIN?D [Concomitant]
  13. VITAMIN E + A OIL [Concomitant]
  14. BUDESONIDE. [Suspect]
     Active Substance: BUDESONIDE
     Indication: CLOSTRIDIUM DIFFICILE INFECTION
     Dosage: FREQUENCY AND DOSING NOT PROVIDED
     Dates: start: 2020
  15. LENVIMA [Suspect]
     Active Substance: LENVATINIB
     Route: 048
     Dates: start: 2019, end: 2019
  16. DOXYCYCLINE. [Concomitant]
     Active Substance: DOXYCYCLINE
  17. ATORVASTATIN [Concomitant]
     Active Substance: ATORVASTATIN
  18. POTASSIUM [Concomitant]
     Active Substance: POTASSIUM
  19. ALLOPURINOL. [Concomitant]
     Active Substance: ALLOPURINOL
  20. PENTOXIFYLLINE. [Concomitant]
     Active Substance: PENTOXIFYLLINE
  21. FUROSEMIDE. [Concomitant]
     Active Substance: FUROSEMIDE
  22. CHONDROITIN SULFATE [Concomitant]
     Active Substance: CHONDROITIN SULFATE (BOVINE)
  23. CEPHALEXIN. [Concomitant]
     Active Substance: CEPHALEXIN
  24. LEVOTHYROXINE. [Concomitant]
     Active Substance: LEVOTHYROXINE
  25. B COMPLEX TABLET [Concomitant]
  26. PILOCARPINE 1% [Concomitant]
     Active Substance: PILOCARPINE
  27. AZITHROMYCIN ANHYDROUS. [Concomitant]
     Active Substance: AZITHROMYCIN ANHYDROUS

REACTIONS (16)
  - Abdominal pain upper [Unknown]
  - Arthralgia [Not Recovered/Not Resolved]
  - Blister [Unknown]
  - Intervertebral disc disorder [Unknown]
  - Pneumonia [Unknown]
  - Fatigue [Not Recovered/Not Resolved]
  - Dysphonia [Not Recovered/Not Resolved]
  - Ulcer [Unknown]
  - Diarrhoea [Not Recovered/Not Resolved]
  - Dehydration [Unknown]
  - Flatulence [Not Recovered/Not Resolved]
  - Decreased appetite [Not Recovered/Not Resolved]
  - Malignant neoplasm progression [Unknown]
  - Peripheral swelling [Recovering/Resolving]
  - Clostridium difficile infection [Not Recovered/Not Resolved]
  - Headache [Not Recovered/Not Resolved]

NARRATIVE: CASE EVENT DATE: 2018
